FAERS Safety Report 17509104 (Version 1)
Quarter: 2020Q1

REPORT INFORMATION
  Report Type: Spontaneous
  Country: US (occurrence: US)
  Receive Date: 20200225
  Receipt Date: 20200225
  Transmission Date: 20200409
  Serious: Yes (Disabling)
  Sender: FDA-Public Use
  Company Number: None

PATIENT
  Age: 55 Year
  Sex: Female
  Weight: 99.79 kg

DRUGS (5)
  1. LISINOPRIL HCTZ 20-25MG [Suspect]
     Active Substance: HYDROCHLOROTHIAZIDE\LISINOPRIL
     Indication: HYPERTENSION
     Dosage: ?          QUANTITY:1 DF DOSAGE FORM;?
     Route: 048
     Dates: start: 20141212, end: 20160816
  2. AMLOPDINE BESYLAT [Concomitant]
  3. GARLIC (VITIMIN) [Concomitant]
  4. VITIMIN C [Concomitant]
  5. MEGA RED (VITIMIN) [Concomitant]

REACTIONS (3)
  - Cerebellar atrophy [None]
  - Haematochezia [None]
  - Colon injury [None]

NARRATIVE: CASE EVENT DATE: 20150303
